FAERS Safety Report 4306656-6 (Version None)
Quarter: 2004Q1

REPORT INFORMATION
  Report Type: 
  Country: None (occurrence: None)
  Receive Date: 20040225
  Receipt Date: 20031022
  Transmission Date: 20041129
  Serious: No
  Sender: FDA-Public Use
  Company Number: US-BRISTOL-MYERS SQUIBB COMPANY-12435384

PATIENT
  Age: 76 Year
  Sex: Female
  Weight: 75 kg

DRUGS (2)
  1. EXCEDRIN (MIGRAINE) [Suspect]
     Indication: HEADACHE
     Dosage: 1-2 CAPLETS 1-2 TIMES DAILY
     Route: 048
     Dates: start: 20030915, end: 20031021
  2. EXCEDRIN (MIGRAINE) [Suspect]
     Indication: NECK PAIN
     Dosage: 1-2 CAPLETS 1-2 TIMES DAILY
     Route: 048
     Dates: start: 20030915, end: 20031021

REACTIONS (1)
  - DRUG INEFFECTIVE [None]
